FAERS Safety Report 10341881 (Version 1)
Quarter: 2014Q3

REPORT INFORMATION
  Report Type: Spontaneous
  Country: JP (occurrence: None)
  Receive Date: 20140722
  Receipt Date: 20140722
  Transmission Date: 20150326
  Serious: Yes (Hospitalization, Other)
  Sender: FDA-Public Use
  Company Number: JP-008156

PATIENT
  Age: 69 Year
  Sex: Male

DRUGS (3)
  1. IOPAMIRON [Suspect]
     Active Substance: IOPAMIDOL
     Indication: COMPUTERISED TOMOGRAM
     Route: 042
     Dates: start: 20140604, end: 20140604
  2. IOPAMIRON [Suspect]
     Active Substance: IOPAMIDOL
     Route: 042
     Dates: start: 20140604, end: 20140604
  3. SEISHOKU (SODIUM CHLORIDE) [Concomitant]

REACTIONS (6)
  - Vomiting [None]
  - Faeces soft [None]
  - Melaena [None]
  - Nausea [None]
  - Hyperhidrosis [None]
  - Abdominal pain [None]

NARRATIVE: CASE EVENT DATE: 20140604
